FAERS Safety Report 12228165 (Version 1)
Quarter: 2016Q1

REPORT INFORMATION
  Report Type: Spontaneous
  Country: US (occurrence: None)
  Receive Date: 20160330
  Receipt Date: 20160330
  Transmission Date: 20160526
  Serious: Yes (Hospitalization)
  Sender: FDA-Public Use
  Company Number: None

PATIENT
  Age: 74 Year
  Sex: Male

DRUGS (1)
  1. MORPHINE [Suspect]
     Active Substance: MORPHINE
     Route: 042
     Dates: start: 20160308, end: 20160309

REACTIONS (6)
  - Hypotension [None]
  - Blood urea increased [None]
  - Dehydration [None]
  - Somnolence [None]
  - Unresponsive to stimuli [None]
  - Blood creatinine increased [None]

NARRATIVE: CASE EVENT DATE: 20160308
